FAERS Safety Report 21768275 (Version 1)
Quarter: 2022Q4

REPORT INFORMATION
  Report Type: Spontaneous
  Country: US (occurrence: None)
  Receive Date: 20221221
  Receipt Date: 20221221
  Transmission Date: 20230112
  Serious: Yes (Other)
  Sender: FDA-Public Use
  Company Number: None

PATIENT
  Weight: 46.72 kg

DRUGS (5)
  1. VYVANSE [Suspect]
     Active Substance: LISDEXAMFETAMINE DIMESYLATE
  2. METHYLPHENIDATE [Suspect]
     Active Substance: METHYLPHENIDATE
  3. INTUNIV [Suspect]
     Active Substance: GUANFACINE HYDROCHLORIDE
  4. APTENSIO XR [Suspect]
     Active Substance: METHYLPHENIDATE HYDROCHLORIDE
  5. RITALIN [Suspect]
     Active Substance: METHYLPHENIDATE HYDROCHLORIDE

REACTIONS (4)
  - Aggression [None]
  - Personality change [None]
  - Drug ineffective [None]
  - Product substitution issue [None]
